FAERS Safety Report 9468394 (Version 2)
Quarter: 2013Q4

REPORT INFORMATION
  Report Type: Spontaneous
  Country: IT (occurrence: IT)
  Receive Date: 20130821
  Receipt Date: 20131029
  Transmission Date: 20140711
  Serious: Yes (Hospitalization)
  Sender: FDA-Public Use
  Company Number: PHHY2013IT088619

PATIENT
  Age: 53 Year
  Sex: Female

DRUGS (4)
  1. DELORAZEPAM [Suspect]
     Indication: INTENTIONAL SELF-INJURY
     Dosage: 1 DF, UNK
     Route: 048
     Dates: start: 20130730, end: 20130730
  2. SERTRALINE [Suspect]
     Indication: INTENTIONAL SELF-INJURY
     Dosage: 1 DF, UNK
     Route: 048
     Dates: start: 20130730, end: 20130730
  3. QUETIAPINE [Suspect]
     Indication: INTENTIONAL SELF-INJURY
     Dosage: 1 DF, UNK
     Route: 048
     Dates: start: 20130730, end: 20130730
  4. MIRTAZAPINE [Suspect]
     Indication: INTENTIONAL SELF-INJURY
     Dosage: 1 DF, UNK
     Route: 048
     Dates: start: 20130730, end: 20130730

REACTIONS (3)
  - Toxicity to various agents [Recovering/Resolving]
  - Electrocardiogram QT prolonged [Recovering/Resolving]
  - Drug abuse [Unknown]
